FAERS Safety Report 18420641 (Version 1)
Quarter: 2020Q4

REPORT INFORMATION
  Report Type: Report from Study
  Country: TH (occurrence: TH)
  Receive Date: 20201023
  Receipt Date: 20201023
  Transmission Date: 20210114
  Serious: Yes (Death)
  Sender: FDA-Public Use
  Company Number: TH-ASTRAZENECA-2020SF36798

PATIENT
  Age: 854 Month
  Sex: Female

DRUGS (1)
  1. TAGRISSO [Suspect]
     Active Substance: OSIMERTINIB
     Indication: LUNG NEOPLASM MALIGNANT
     Route: 048
     Dates: start: 20200312, end: 202008

REACTIONS (4)
  - Drug ineffective [Fatal]
  - Fatigue [Fatal]
  - Sepsis [Fatal]
  - Renal failure [Fatal]

NARRATIVE: CASE EVENT DATE: 202008
